FAERS Safety Report 6585902-2 (Version None)
Quarter: 2010Q1

REPORT INFORMATION
  Report Type: 
  Country: None (occurrence: None)
  Receive Date: 20100217
  Receipt Date: 20100211
  Transmission Date: 20100710
  Serious: Yes (Hospitalization)
  Sender: FDA-Public Use
  Company Number: PHHO2009IT14043

PATIENT
  Sex: Male
  Weight: 104 kg

DRUGS (4)
  1. CERTICAN [Suspect]
     Indication: RENAL TRANSPLANT
     Dosage: 0.75 MG, BID
     Route: 048
     Dates: start: 20091023, end: 20091029
  2. CERTICAN [Suspect]
     Dosage: 0.75 MG, BID
     Route: 048
     Dates: start: 20091109, end: 20091206
  3. NEORAL [Suspect]
     Indication: RENAL TRANSPLANT
     Dosage: 175 MG, BID
     Route: 048
     Dates: start: 20091023
  4. DELTACORTENE [Concomitant]
     Indication: RENAL TRANSPLANT
     Dosage: 20 MG/DAY
     Route: 048
     Dates: start: 20091023

REACTIONS (4)
  - COAGULATION TEST ABNORMAL [None]
  - COMPLICATIONS OF TRANSPLANTED KIDNEY [None]
  - RENAL CORTICAL NECROSIS [None]
  - RENAL TUBULAR NECROSIS [None]
